FAERS Safety Report 14284683 (Version 2)
Quarter: 2022Q1

REPORT INFORMATION
  Report Type: Spontaneous
  Country: IN (occurrence: IN)
  Receive Date: 20171214
  Receipt Date: 20220110
  Transmission Date: 20220423
  Serious: Yes (Hospitalization, Other)
  Sender: FDA-Public Use
  Company Number: IN-LUPIN PHARMACEUTICALS INC.-2017-07199

PATIENT
  Age: 71 Year
  Sex: Male

DRUGS (9)
  1. ETHAMBUTOL [Suspect]
     Active Substance: ETHAMBUTOL HYDROCHLORIDE
     Indication: Tuberculosis
     Dosage: UNK
     Route: 065
  2. PYRAZINAMIDE [Suspect]
     Active Substance: PYRAZINAMIDE
     Indication: Tuberculosis
     Dosage: UNK
     Route: 065
  3. RIFAMPIN [Interacting]
     Active Substance: RIFAMPIN
     Indication: Tuberculosis
     Dosage: UNK
     Route: 065
  4. OFLOXACIN [Suspect]
     Active Substance: OFLOXACIN
     Indication: Tuberculosis
     Dosage: UNK
     Route: 065
  5. CLARITHROMYCIN [Interacting]
     Active Substance: CLARITHROMYCIN
     Indication: Tuberculosis
     Dosage: UNK
     Route: 065
  6. ISONIAZID [Suspect]
     Active Substance: ISONIAZID
     Indication: Tuberculosis
     Dosage: UNK
     Route: 065
  7. CYCLOSPORINE [Interacting]
     Active Substance: CYCLOSPORINE
     Indication: Product used for unknown indication
     Dosage: 125 MG, QD
     Route: 065
  8. CYCLOSPORINE [Interacting]
     Active Substance: CYCLOSPORINE
     Dosage: 50 MG, QD
     Route: 065
  9. CIPROFLOXACIN [Concomitant]
     Active Substance: CIPROFLOXACIN
     Indication: Mycobacterial infection
     Dosage: UNK
     Route: 065

REACTIONS (6)
  - Skin mass [Recovering/Resolving]
  - Oedema peripheral [Recovering/Resolving]
  - Erythema [Recovering/Resolving]
  - Osteomyelitis [Recovering/Resolving]
  - Impaired healing [Recovering/Resolving]
  - Drug interaction [Unknown]
